FAERS Safety Report 17275432 (Version 1)
Quarter: 2020Q1

REPORT INFORMATION
  Report Type: Spontaneous
  Country: GB (occurrence: GB)
  Receive Date: 20200116
  Receipt Date: 20200116
  Transmission Date: 20200409
  Serious: Yes (Other)
  Sender: FDA-Public Use
  Company Number: GB-TEVA-2020-GB-1167697

PATIENT
  Age: 88 Year
  Sex: Female
  Weight: 50.8 kg

DRUGS (3)
  1. GENERAL ANAESTHESIA [Concomitant]
     Indication: POLYPECTOMY
  2. IMODIUM [Concomitant]
     Active Substance: LOPERAMIDE HYDROCHLORIDE
  3. METRONIDAZOLE. [Suspect]
     Active Substance: METRONIDAZOLE
     Dosage: 400 MILLIGRAM
     Route: 048
     Dates: start: 20191016, end: 20191024

REACTIONS (8)
  - Vomiting [Recovered/Resolved]
  - Chromaturia [Recovered/Resolved]
  - Dysarthria [Recovered/Resolved]
  - Musculoskeletal stiffness [Recovered/Resolved]
  - Feeling hot [Recovered/Resolved]
  - Somnolence [Recovered/Resolved]
  - Nausea [Recovered/Resolved]
  - Lip exfoliation [Recovered/Resolved]

NARRATIVE: CASE EVENT DATE: 20191016
